FAERS Safety Report 10120881 (Version 3)
Quarter: 2014Q2

REPORT INFORMATION
  Report Type: Spontaneous
  Country: US (occurrence: US)
  Receive Date: 20140425
  Receipt Date: 20140513
  Transmission Date: 20141212
  Serious: Yes (Hospitalization)
  Sender: FDA-Public Use
  Company Number: US-INCYTE CORPORATION-2014IN000514

PATIENT
  Age: 66 Year
  Sex: Female
  Weight: 68.93 kg

DRUGS (18)
  1. JAKAFI [Suspect]
     Indication: MYELOFIBROSIS
     Dosage: 15 MG, BID
     Route: 048
     Dates: start: 20121108
  2. METOPROLOL [Concomitant]
     Dosage: 100 MG, BID
  3. ASPIRIN [Concomitant]
     Dosage: 325 MG, QD
  4. HYDROCHLOROTHIAZIDE [Concomitant]
     Dosage: 12.5 MG, QD
  5. DOCUSATE [Concomitant]
     Dosage: 1 DF, TID
  6. POTASSIUM CHLORIDE [Concomitant]
     Dosage: 10 MEQ, QD
  7. ALLOPURINOL [Concomitant]
     Dosage: 100 MG, QD
  8. NORTRIPTYLINE [Concomitant]
     Dosage: 10 MG, QD
  9. NITROSTAT [Concomitant]
     Dosage: UNK UNK, PRN
  10. MIRALAX                            /00754501/ [Concomitant]
     Dosage: DAILY
  11. KEPPRA [Concomitant]
     Dosage: 1000 MG, BID
  12. LORCET                             /00607101/ [Concomitant]
     Dosage: 325 MG, PRN
  13. PROTONIX [Concomitant]
     Dosage: 40 MG, QD
  14. DILANTIN                           /00017401/ [Concomitant]
     Dosage: 200 MG, TID
  15. PHENERGAN                          /00033001/ [Concomitant]
     Dosage: 25 MG, BID
  16. CARISOPRODOL [Concomitant]
     Dosage: 350 MG, TID
  17. MORPHINE [Concomitant]
     Dosage: 30 MG, BID DOES NOT ALWAYS TAKE AS PRESCRIBED
  18. IRON [Concomitant]
     Dosage: 325 MG, QD

REACTIONS (18)
  - Convulsion [Recovered/Resolved]
  - Pain [Recovering/Resolving]
  - Feeling abnormal [Unknown]
  - Fatigue [Not Recovered/Not Resolved]
  - Cough [Recovering/Resolving]
  - Dyspnoea exertional [Unknown]
  - Oedema peripheral [Unknown]
  - Palpitations [Not Recovered/Not Resolved]
  - Vision blurred [Unknown]
  - Asthenia [Unknown]
  - Decreased appetite [Unknown]
  - Constipation [Unknown]
  - Drug dose omission [Unknown]
  - Weight decreased [Unknown]
  - Leukocytosis [Unknown]
  - Dizziness [Unknown]
  - Weight increased [Unknown]
  - Headache [Unknown]
